FAERS Safety Report 6900588-2 (Version None)
Quarter: 2010Q3

REPORT INFORMATION
  Report Type: 
  Country: None (occurrence: None)
  Receive Date: 20100803
  Receipt Date: 20100722
  Transmission Date: 20110219
  Serious: Yes (Death, Other)
  Sender: FDA-Public Use
  Company Number: PHHY2010GB20359

PATIENT
  Sex: Male

DRUGS (1)
  1. EXELON [Suspect]
     Indication: PARKINSON'S DISEASE
     Dosage: UNK
     Route: 062

REACTIONS (2)
  - BRADYCARDIA [None]
  - BRONCHOPNEUMONIA [None]
